FAERS Safety Report 5102060-1 (Version None)
Quarter: 2006Q3

REPORT INFORMATION
  Report Type: 
  Country: None (occurrence: None)
  Receive Date: 20060907
  Receipt Date: 20060825
  Transmission Date: 20061208
  Serious: Yes (Hospitalization)
  Sender: FDA-Public Use
  Company Number: 163-20785-06081219

PATIENT
  Age: 77 Year
  Sex: Female

DRUGS (2)
  1. THALOMID [Suspect]
     Indication: BEHCET'S SYNDROME
     Dosage: 50 MG, 1 IN 1 D, ORAL
     Route: 048
     Dates: start: 20050801, end: 20051001
  2. THALOMID [Suspect]
     Indication: BEHCET'S SYNDROME
     Dosage: 50 MG, 1 IN 1 D, ORAL
     Route: 048
     Dates: start: 20060101

REACTIONS (3)
  - BEHCET'S SYNDROME [None]
  - CONDITION AGGRAVATED [None]
  - GASTROOESOPHAGEAL REFLUX DISEASE [None]
